FAERS Safety Report 19888521 (Version 1)
Quarter: 2021Q3

REPORT INFORMATION
  Report Type: Spontaneous
  Country: US (occurrence: US)
  Receive Date: 20210925
  Receipt Date: 20210925
  Transmission Date: 20211014
  Serious: Yes (Other)
  Sender: FDA-Public Use
  Company Number: None

PATIENT
  Age: 64 Year
  Sex: Male
  Weight: 88.45 kg

DRUGS (1)
  1. FLUTICASONE PROPIONATE AND SALMETEROL INHALATION POWDER USP [Suspect]
     Active Substance: FLUTICASONE PROPIONATE\SALMETEROL XINAFOATE
     Indication: CHRONIC OBSTRUCTIVE PULMONARY DISEASE
     Route: 055
     Dates: start: 20210712

REACTIONS (2)
  - Dyspnoea [None]
  - Device malfunction [None]

NARRATIVE: CASE EVENT DATE: 20210918
